FAERS Safety Report 12140708 (Version 2)
Quarter: 2018Q2

REPORT INFORMATION
  Report Type: Spontaneous
  Country: US (occurrence: US)
  Receive Date: 20160303
  Receipt Date: 20180404
  Transmission Date: 20180711
  Serious: Yes (Hospitalization, Other)
  Sender: FDA-Public Use
  Company Number: US-UNITED THERAPEUTICS-UNT-2016-003170

PATIENT
  Sex: Female

DRUGS (1)
  1. REMODULIN [Suspect]
     Active Substance: TREPROSTINIL
     Indication: PULMONARY HYPERTENSION
     Dosage: 5ML, CONTINUING
     Route: 041
     Dates: start: 20130701

REACTIONS (2)
  - Clostridium difficile infection [Recovered/Resolved]
  - Endocarditis [Unknown]

NARRATIVE: CASE EVENT DATE: 20160226
